FAERS Safety Report 8197716-0 (Version None)
Quarter: 2012Q1

REPORT INFORMATION
  Report Type: 
  Country: None (occurrence: None)
  Receive Date: 20120309
  Receipt Date: 20120227
  Transmission Date: 20120608
  Serious: Yes (Hospitalization, Other)
  Sender: FDA-Public Use
  Company Number: US-SANOFI-AVENTIS-2012SA013153

PATIENT
  Age: 70 Year
  Sex: Male

DRUGS (2)
  1. LANTUS [Suspect]
     Indication: DIABETES MELLITUS
     Dosage: DOSE:20 UNIT(S)
     Route: 058
  2. HUMALOG [Suspect]
     Indication: DIABETES MELLITUS
     Route: 065

REACTIONS (4)
  - COLON CANCER [None]
  - HYPOGLYCAEMIC UNCONSCIOUSNESS [None]
  - DECREASED APPETITE [None]
  - BLOOD GLUCOSE INCREASED [None]
